FAERS Safety Report 7513728-1 (Version None)
Quarter: 2011Q2

REPORT INFORMATION
  Report Type: 
  Country: None (occurrence: None)
  Receive Date: 20110531
  Receipt Date: 20110526
  Transmission Date: 20111010
  Serious: Yes (Death)
  Sender: FDA-Public Use
  Company Number: PHHY2011GB45801

PATIENT
  Age: 28 Year
  Sex: Male

DRUGS (8)
  1. DMD [Concomitant]
  2. METHADONE HCL [Suspect]
  3. DIHYDROCODEINE BITARTRATE INJ [Suspect]
  4. MIRTAZAPINE [Concomitant]
  5. OXAZEPAM [Concomitant]
  6. DIAZEPAM [Concomitant]
  7. TEMAZEPAM [Concomitant]
  8. ALCOHOL [Concomitant]

REACTIONS (1)
  - TOXICITY TO VARIOUS AGENTS [None]
